FAERS Safety Report 18037740 (Version 1)
Quarter: 2020Q3

REPORT INFORMATION
  Report Type: Spontaneous
  Country: CN (occurrence: CN)
  Receive Date: 20200717
  Receipt Date: 20200717
  Transmission Date: 20201103
  Serious: Yes (Other)
  Sender: FDA-Public Use
  Company Number: CN-ASTRAZENECA-2020SE89305

PATIENT
  Age: 21185 Day
  Sex: Female
  Weight: 65 kg

DRUGS (4)
  1. PULMICORT RESPULES [Suspect]
     Active Substance: BUDESONIDE
     Indication: COUGH
     Dosage: 1.0MG (2 VIALS) BID
     Route: 055
     Dates: start: 20200702
  2. PULMICORT RESPULES [Suspect]
     Active Substance: BUDESONIDE
     Indication: COUGH
     Dosage: 1.0MG (2 VIALS) BID
     Route: 055
     Dates: start: 20200701, end: 20200702
  3. PULMICORT RESPULES [Suspect]
     Active Substance: BUDESONIDE
     Indication: PRODUCTIVE COUGH
     Dosage: 1.0MG (2 VIALS) BID
     Route: 055
     Dates: start: 20200701, end: 20200702
  4. PULMICORT RESPULES [Suspect]
     Active Substance: BUDESONIDE
     Indication: PRODUCTIVE COUGH
     Dosage: 1.0MG (2 VIALS) BID
     Route: 055
     Dates: start: 20200702

REACTIONS (2)
  - Dyspnoea [Recovered/Resolved]
  - Palpitations [Recovered/Resolved]

NARRATIVE: CASE EVENT DATE: 20200701
